FAERS Safety Report 8511452 (Version 2)
Quarter: 2012Q4

REPORT INFORMATION
  Report Type: 
  Country: US (occurrence: US)
  Receive Date: 20120413
  Receipt Date: 20120919
  Transmission Date: 20130627
  Serious: No
  Sender: FDA-Public Use
  Company Number: US-ASTRAZENECA-2011SE32392

PATIENT
  Age: 58 Year
  Sex: Female

DRUGS (4)
  1. NEXIUM [Suspect]
     Route: 048
  2. PRILOSEC OTC [Suspect]
     Route: 048
  3. OMEPRAZOLE [Suspect]
     Route: 065
  4. RHINOCORT AQUA [Concomitant]

REACTIONS (4)
  - Malaise [Unknown]
  - Drug dose omission [Unknown]
  - Drug effect incomplete [Unknown]
  - Drug ineffective [Unknown]
